FAERS Safety Report 9819527 (Version 2)
Quarter: 2014Q1

REPORT INFORMATION
  Report Type: Spontaneous
  Country: US (occurrence: US)
  Receive Date: 20140115
  Receipt Date: 20140224
  Transmission Date: 20141002
  Serious: Yes (Other)
  Sender: FDA-Public Use
  Company Number: CHPA2014US000666

PATIENT
  Sex: Male

DRUGS (4)
  1. VOLTAREN GEL [Suspect]
     Indication: GOUT
     Dosage: FINGER SIZE, ONCE AT NIGHT
  2. VOLTAREN GEL [Suspect]
     Indication: OFF LABEL USE
  3. VOLTAREN GEL [Suspect]
     Indication: ARTHRITIS
  4. LIVALO [Concomitant]
     Indication: BLOOD CHOLESTEROL INCREASED

REACTIONS (9)
  - Blood cholesterol increased [Unknown]
  - Gout [Not Recovered/Not Resolved]
  - Application site pain [Unknown]
  - Dry skin [Recovering/Resolving]
  - Erythema [Recovering/Resolving]
  - Drug dispensed to wrong patient [Unknown]
  - Underdose [Unknown]
  - Wrong technique in drug usage process [Unknown]
  - Therapeutic response unexpected [Unknown]
